FAERS Safety Report 8199375-X (Version None)
Quarter: 2012Q1

REPORT INFORMATION
  Report Type: 
  Country: None (occurrence: None)
  Receive Date: 20120309
  Receipt Date: 20120301
  Transmission Date: 20120608
  Serious: Yes (Other)
  Sender: FDA-Public Use
  Company Number: BE-ABBOTT-12P-013-0910384-02

PATIENT
  Sex: Female

DRUGS (13)
  1. INTRAVAGINAL CONTRACEPTIVES [Concomitant]
     Indication: CONTRACEPTION
     Dates: start: 20080421
  2. HUMIRA [Suspect]
     Route: 058
     Dates: start: 20100702
  3. HUMIRA [Suspect]
     Route: 058
     Dates: start: 20101125, end: 20101230
  4. IMODIUM [Concomitant]
     Indication: DIARRHOEA
     Dates: start: 20070817
  5. FOLIC ACID [Concomitant]
     Dates: start: 20110716
  6. HUMIRA [Suspect]
     Indication: CROHN'S DISEASE
     Route: 058
     Dates: start: 20080421
  7. FOLIC ACID [Concomitant]
     Indication: VITAMIN SUPPLEMENTATION
     Dates: start: 20080926, end: 20081118
  8. HUMIRA [Suspect]
     Route: 058
     Dates: start: 20100618, end: 20100618
  9. HUMIRA [Suspect]
     Route: 058
     Dates: start: 20100604, end: 20100604
  10. METHOTREXATE [Concomitant]
     Dates: start: 20110714
  11. HUMIRA [Suspect]
     Route: 058
     Dates: start: 20110202, end: 20110714
  12. METHOTREXATE [Concomitant]
     Indication: CROHN'S DISEASE
     Dates: start: 20080924, end: 20081118
  13. HUMIRA [Concomitant]
     Indication: CROHN'S DISEASE
     Route: 058

REACTIONS (1)
  - CROHN'S DISEASE [None]
